FAERS Safety Report 6916577-8 (Version None)
Quarter: 2010Q3

REPORT INFORMATION
  Report Type: 
  Country: None (occurrence: None)
  Receive Date: 20100809
  Receipt Date: 20100809
  Transmission Date: 20110219
  Serious: Yes (Life-Threatening, Hospitalization)
  Sender: FDA-Public Use
  Company Number: None

PATIENT
  Age: 77 Year
  Sex: Female
  Weight: 65.7716 kg

DRUGS (1)
  1. AVASTIN [Suspect]
     Indication: RETINAL VEIN OCCLUSION
     Dosage: 5 INJECTIONS INTRACORNEAL  (5 INJECTIONS, ONE DOUBLE)
     Route: 021
     Dates: start: 20060501, end: 20070201

REACTIONS (2)
  - CARDIAC FAILURE CONGESTIVE [None]
  - UNEVALUABLE EVENT [None]
